FAERS Safety Report 11058490 (Version 1)
Quarter: 2015Q2

REPORT INFORMATION
  Report Type: Spontaneous
  Country: US (occurrence: US)
  Receive Date: 20150423
  Receipt Date: 20150423
  Transmission Date: 20150821
  Serious: No
  Sender: FDA-Public Use
  Company Number: US-009507513-1504USA018768

PATIENT
  Age: 6 Year
  Sex: Female

DRUGS (1)
  1. PROVENTIL [Suspect]
     Active Substance: ALBUTEROL
     Indication: ASTHMA
     Dosage: 2 PUFFS 3 TIMES A DAY AS NEEDED
     Route: 055
     Dates: start: 2014

REACTIONS (4)
  - Dyspnoea [Not Recovered/Not Resolved]
  - Asthma [Not Recovered/Not Resolved]
  - Product quality issue [Unknown]
  - Drug ineffective [Not Recovered/Not Resolved]

NARRATIVE: CASE EVENT DATE: 201504
